FAERS Safety Report 19644750 (Version 1)
Quarter: 2021Q3

REPORT INFORMATION
  Report Type: Spontaneous
  Country: JP (occurrence: JP)
  Receive Date: 20210802
  Receipt Date: 20210802
  Transmission Date: 20211014
  Serious: Yes (Other)
  Sender: FDA-Public Use
  Company Number: JP-SUN PHARMACEUTICAL INDUSTRIES LTD-2021RR-305898

PATIENT
  Age: 50 Year
  Sex: Female

DRUGS (8)
  1. OXALIPLATIN. [Suspect]
     Active Substance: OXALIPLATIN
     Dosage: UNK
     Route: 065
  2. PANITUMUMAB [Suspect]
     Active Substance: PANITUMUMAB
     Dosage: UNK
     Route: 065
  3. 5?FLUOROURACIL [Suspect]
     Active Substance: FLUOROURACIL
     Indication: METASTASES TO LIVER
     Dosage: UNK
     Route: 065
  4. CALCIUM FOLINAT [Suspect]
     Active Substance: LEUCOVORIN CALCIUM
     Indication: METASTASES TO LIVER
     Dosage: UNK
     Route: 065
  5. CALCIUM FOLINAT [Suspect]
     Active Substance: LEUCOVORIN CALCIUM
     Dosage: UNK
     Route: 065
  6. OXALIPLATIN. [Suspect]
     Active Substance: OXALIPLATIN
     Indication: METASTASES TO LIVER
     Dosage: UNK
     Route: 065
  7. PANITUMUMAB [Suspect]
     Active Substance: PANITUMUMAB
     Indication: METASTASES TO LIVER
     Dosage: UNK
     Route: 065
  8. 5?FLUOROURACIL [Suspect]
     Active Substance: FLUOROURACIL
     Dosage: UNK
     Route: 065

REACTIONS (4)
  - Drug hypersensitivity [Unknown]
  - Therapeutic product effect incomplete [Unknown]
  - Liver injury [Unknown]
  - Disease progression [Unknown]
